FAERS Safety Report 18598667 (Version 2)
Quarter: 2021Q1

REPORT INFORMATION
  Report Type: Report from Study
  Country: US (occurrence: US)
  Receive Date: 20201210
  Receipt Date: 20210127
  Transmission Date: 20210419
  Serious: Yes (Other)
  Sender: FDA-Public Use
  Company Number: US-IPSEN BIOPHARMACEUTICALS, INC.-2018-09471

PATIENT
  Age: 3 Year
  Sex: Male
  Weight: 11.79 kg

DRUGS (8)
  1. ALBUTEROL. [Concomitant]
     Active Substance: ALBUTEROL
     Indication: LUNG DISORDER
  2. DYSPORT [Suspect]
     Active Substance: ABOBOTULINUMTOXINA
     Indication: MUSCLE SPASTICITY
  3. ALBUTEROL. [Concomitant]
     Active Substance: ALBUTEROL
     Indication: ASTHMA
     Dosage: ONGOING
     Dates: start: 20150515
  4. DYSPORT [Suspect]
     Active Substance: ABOBOTULINUMTOXINA
     Indication: MUSCLE SPASTICITY
     Dosage: 500IU (RAND L MEDIAL HAMSTRING?90IU, RANDL LATERAL HAMSTRING? 40IU EACH, 4 POINTS IN GASTROCNEMIUS.
     Route: 030
     Dates: start: 20170724, end: 20170724
  5. DYSPORT [Suspect]
     Active Substance: ABOBOTULINUMTOXINA
     Indication: OFF LABEL USE
  6. KEPPRA [Concomitant]
     Active Substance: LEVETIRACETAM
     Indication: LUNG DISORDER
     Dosage: ONGOING
     Dates: start: 20150521
  7. DIAZEPAM. [Concomitant]
     Active Substance: DIAZEPAM
     Indication: CEREBRAL PALSY
     Dates: start: 20180815, end: 20180820
  8. DIASTAT [Concomitant]
     Active Substance: DIAZEPAM
     Indication: SEIZURE
     Dosage: ONGOING
     Route: 030
     Dates: start: 2014

REACTIONS (3)
  - Femur fracture [Recovered/Resolved]
  - Off label use [Unknown]
  - Constipation [Recovered/Resolved]

NARRATIVE: CASE EVENT DATE: 20170724
